FAERS Safety Report 7691536-9 (Version None)
Quarter: 2011Q3

REPORT INFORMATION
  Report Type: 
  Country: None (occurrence: None)
  Receive Date: 20110818
  Receipt Date: 20110816
  Transmission Date: 20111222
  Serious: No
  Sender: FDA-Public Use
  Company Number: US-TEVA-296995USA

PATIENT
  Sex: Female
  Weight: 83.99 kg

DRUGS (2)
  1. CIPROFLOXACIN [Concomitant]
     Indication: CYSTITIS
  2. PLAN B ONE-STEP [Suspect]
     Indication: POST COITAL CONTRACEPTION
     Dosage: 1.5 MILLIGRAM;
     Route: 048
     Dates: start: 20110814, end: 20110814

REACTIONS (3)
  - VAGINAL DISCHARGE [None]
  - VULVOVAGINAL DISCOMFORT [None]
  - MENSTRUATION IRREGULAR [None]
